FAERS Safety Report 7459793-1 (Version None)
Quarter: 2011Q2

REPORT INFORMATION
  Report Type: 
  Country: None (occurrence: None)
  Receive Date: 20110505
  Receipt Date: 20110504
  Transmission Date: 20111010
  Serious: Yes (Other)
  Sender: FDA-Public Use
  Company Number: IT-PFIZER INC-2011087845

PATIENT
  Age: 33 Year
  Sex: Female

DRUGS (1)
  1. ZOLOFT [Suspect]
     Indication: DEPRESSION
     Dosage: UNK
     Route: 048
     Dates: start: 20110401, end: 20110420

REACTIONS (3)
  - TOXIC SKIN ERUPTION [None]
  - RASH MACULO-PAPULAR [None]
  - VIRAL INFECTION [None]
